FAERS Safety Report 12276748 (Version 6)
Quarter: 2016Q3

REPORT INFORMATION
  Report Type: Spontaneous
  Country: US (occurrence: US)
  Receive Date: 20160418
  Receipt Date: 20160705
  Transmission Date: 20161109
  Serious: Yes (Other)
  Sender: FDA-Public Use
  Company Number: US-PFIZER INC-2016192246

PATIENT
  Age: 73 Year
  Sex: Female
  Weight: 63.5 kg

DRUGS (8)
  1. VITAMIN D [Concomitant]
     Active Substance: CHOLECALCIFEROL
     Indication: VITAMIN D DECREASED
     Dosage: 50,000 UNITS ONCE EVERY SUNDAY
  2. IBRANCE [Suspect]
     Active Substance: PALBOCICLIB
     Dosage: 100 MG, UNK
     Dates: start: 20160406, end: 20160421
  3. VALSARTAN. [Concomitant]
     Active Substance: VALSARTAN
     Indication: HYPERTENSION
     Dosage: 80 MG, 2X/DAY
     Dates: start: 201602
  4. INDERAL [Concomitant]
     Active Substance: PROPRANOLOL HYDROCHLORIDE
     Indication: MITRAL VALVE PROLAPSE
     Dosage: 20 MG, 4X/DAY
  5. FASLODEX [Concomitant]
     Active Substance: FULVESTRANT
     Indication: BREAST CANCER METASTATIC
     Dosage: 1 OF 250 MG INJECTION IN EACH BUTTOCKS WEEKLY FOR 3 TIMES, THEN STOP FOR A MONTH
     Dates: start: 20160212
  6. FASLODEX [Concomitant]
     Active Substance: FULVESTRANT
     Dosage: 2 OF THE 250MG INJECTION
     Dates: start: 20160226
  7. IBRANCE [Suspect]
     Active Substance: PALBOCICLIB
     Indication: BREAST CANCER METASTATIC
     Dosage: 125 MG, CYCLIC (ONCE DAILY FOR 21 DAYS ON/ 5 DAYS OFF)
     Dates: start: 20160224, end: 20160309
  8. FASLODEX [Concomitant]
     Active Substance: FULVESTRANT
     Dosage: 3 OF THE 250MG INJECTION
     Dates: start: 20160321

REACTIONS (7)
  - Neutropenia [Unknown]
  - White blood cell count decreased [Not Recovered/Not Resolved]
  - Platelet count decreased [Not Recovered/Not Resolved]
  - Red blood cell count decreased [Not Recovered/Not Resolved]
  - Retching [Recovered/Resolved]
  - Urinary tract infection [Recovered/Resolved]
  - Dysuria [Recovered/Resolved]

NARRATIVE: CASE EVENT DATE: 20160224
